FAERS Safety Report 6871890-8 (Version None)
Quarter: 2010Q3

REPORT INFORMATION
  Report Type: 
  Country: None (occurrence: None)
  Receive Date: 20100723
  Receipt Date: 20100712
  Transmission Date: 20110219
  Serious: Yes (Other)
  Sender: FDA-Public Use
  Company Number: US-SANOFI-AVENTIS-2010SA040587

PATIENT
  Sex: Male

DRUGS (5)
  1. MULTAQ [Suspect]
     Indication: ATRIAL FIBRILLATION
     Route: 048
     Dates: start: 20100401, end: 20100713
  2. SIMVASTATIN [Concomitant]
  3. WARFARIN SODIUM [Concomitant]
  4. ZANAFLEX [Concomitant]
  5. TRAMADOL HCL [Concomitant]

REACTIONS (4)
  - ATRIAL FIBRILLATION [None]
  - DYSPNOEA EXERTIONAL [None]
  - FATIGUE [None]
  - OEDEMA PERIPHERAL [None]
